FAERS Safety Report 23220421 (Version 8)
Quarter: 2024Q2

REPORT INFORMATION
  Report Type: Spontaneous
  Country: US (occurrence: US)
  Receive Date: 20231123
  Receipt Date: 20240429
  Transmission Date: 20240716
  Serious: Yes (Other)
  Sender: FDA-Public Use
  Company Number: US-GLAXOSMITHKLINE-US2023AMR158680

PATIENT

DRUGS (5)
  1. ZEJULA [Suspect]
     Active Substance: NIRAPARIB
     Indication: Product used for unknown indication
     Dosage: 200 MG, QD
  2. ZEJULA [Suspect]
     Active Substance: NIRAPARIB
     Dosage: 200 MG, QD
     Dates: end: 202311
  3. ZEJULA [Suspect]
     Active Substance: NIRAPARIB
     Dosage: 100 MG, QD
  4. ZEJULA [Suspect]
     Active Substance: NIRAPARIB
     Dosage: 2 DF, QD
  5. ZEJULA [Suspect]
     Active Substance: NIRAPARIB
     Dosage: 100 MG, QD

REACTIONS (26)
  - Ascites [Unknown]
  - Clostridium difficile infection [Not Recovered/Not Resolved]
  - Dry mouth [Not Recovered/Not Resolved]
  - Constipation [Not Recovered/Not Resolved]
  - Tinnitus [Not Recovered/Not Resolved]
  - Abdominal pain upper [Unknown]
  - Thirst [Not Recovered/Not Resolved]
  - Gastric infection [Unknown]
  - Headache [Recovering/Resolving]
  - Neck pain [Recovering/Resolving]
  - Arthralgia [Recovering/Resolving]
  - Hypoaesthesia [Unknown]
  - Tinnitus [Unknown]
  - Rash [Unknown]
  - Insomnia [Not Recovered/Not Resolved]
  - Vascular stenosis [Unknown]
  - Anxiety [Not Recovered/Not Resolved]
  - Blood pressure increased [Unknown]
  - Abdominal distension [Unknown]
  - Hepatic hypertrophy [Unknown]
  - Hepatic steatosis [Unknown]
  - Abdominal pain [Unknown]
  - Muscle spasms [Unknown]
  - Chills [Unknown]
  - Pyrexia [Unknown]
  - Product dose omission in error [Unknown]
